FAERS Safety Report 7138106-9 (Version None)
Quarter: 2010Q4

REPORT INFORMATION
  Report Type: 
  Country: None (occurrence: None)
  Receive Date: 20101206
  Receipt Date: 20101124
  Transmission Date: 20110411
  Serious: Yes (Hospitalization)
  Sender: FDA-Public Use
  Company Number: DE-SANOFI-AVENTIS-2010SA071813

PATIENT
  Age: 66 Year
  Sex: Male

DRUGS (14)
  1. OXALIPLATIN [Suspect]
     Route: 042
     Dates: start: 20101007, end: 20101007
  2. CAPECITABINE [Suspect]
     Route: 048
     Dates: start: 20101007
  3. BEVACIZUMAB [Suspect]
     Route: 042
     Dates: start: 20101007, end: 20101007
  4. ASPIRIN [Concomitant]
     Dates: start: 20101025
  5. NEUROTRAT FORTE [Concomitant]
  6. PERINDOPRIL [Concomitant]
  7. AMLODIPINE [Concomitant]
  8. HYDROCHLOROTHIAZIDE [Concomitant]
  9. METOPROLOL [Concomitant]
  10. PANTOZOL [Concomitant]
  11. INSULIN [Concomitant]
  12. RAMIPRIL [Concomitant]
  13. METFORMIN [Concomitant]
  14. PREDNISOLONE [Concomitant]

REACTIONS (3)
  - CHOLANGITIS [None]
  - DIARRHOEA [None]
  - MALIGNANT NEOPLASM PROGRESSION [None]
